FAERS Safety Report 8619333 (Version 2)
Quarter: 2017Q2

REPORT INFORMATION
  Report Type: Spontaneous
  Country: US (occurrence: US)
  Receive Date: 20120618
  Receipt Date: 20170621
  Transmission Date: 20170830
  Serious: Yes (Other)
  Sender: FDA-Public Use
  Company Number: US-SANOFI-AVENTIS-2012SA040367

PATIENT
  Age: 46 Year
  Sex: Male

DRUGS (4)
  1. METHOTREXATE. [Suspect]
     Active Substance: METHOTREXATE
     Indication: ERYTHRODERMIC PSORIASIS
     Dosage: UPTO 15 MG WEEKLY
     Route: 065
  2. ACITRETIN. [Concomitant]
     Active Substance: ACITRETIN
     Indication: ERYTHRODERMIC PSORIASIS
  3. RIFAMPICIN [Suspect]
     Active Substance: RIFAMPIN
     Indication: EXPOSURE TO COMMUNICABLE DISEASE
     Route: 065
  4. ISONIAZIDE [Concomitant]
     Active Substance: ISONIAZID
     Indication: EXPOSURE TO COMMUNICABLE DISEASE

REACTIONS (2)
  - Acute generalised exanthematous pustulosis [Unknown]
  - Drug ineffective [Unknown]
